APPROVED DRUG PRODUCT: DILTIAZEM HYDROCHLORIDE
Active Ingredient: DILTIAZEM HYDROCHLORIDE
Strength: 120MG
Dosage Form/Route: CAPSULE, EXTENDED RELEASE;ORAL
Application: A216304 | Product #001 | TE Code: AB2
Applicant: UTOPIC PHARMACEUTICALS INC
Approved: Aug 8, 2022 | RLD: No | RS: No | Type: RX